FAERS Safety Report 13567369 (Version 2)
Quarter: 2017Q2

REPORT INFORMATION
  Report Type: Spontaneous
  Country: US (occurrence: US)
  Receive Date: 20170522
  Receipt Date: 20170608
  Transmission Date: 20170830
  Serious: Yes (Life-Threatening, Hospitalization, Disabling)
  Sender: FDA-Public Use
  Company Number: PHEH2017US014378

PATIENT
  Age: 46 Year
  Sex: Female

DRUGS (2)
  1. TRILEPTAL [Suspect]
     Active Substance: OXCARBAZEPINE
     Indication: BIPOLAR I DISORDER
     Dosage: 750 MG (300 MG IN MORNING AND 450 MG IN EVENING), QD
     Route: 065
  2. TRILEPTAL [Suspect]
     Active Substance: OXCARBAZEPINE
     Dosage: UNK
     Route: 048
     Dates: start: 20170406, end: 20170501

REACTIONS (9)
  - Depressed mood [Unknown]
  - Dysphagia [Unknown]
  - Dizziness [Unknown]
  - Hyponatraemia [Recovered/Resolved with Sequelae]
  - Paraesthesia [Unknown]
  - Blood sodium decreased [Unknown]
  - Dyspepsia [Unknown]
  - Oesophageal spasm [Unknown]
  - Feeding disorder [Unknown]

NARRATIVE: CASE EVENT DATE: 20170428
